FAERS Safety Report 5633160-5 (Version None)
Quarter: 2008Q1

REPORT INFORMATION
  Report Type: 
  Country: None (occurrence: None)
  Receive Date: 20080221
  Receipt Date: 20080214
  Transmission Date: 20080703
  Serious: Yes (Other)
  Sender: FDA-Public Use
  Company Number: DE-ASTRAZENECA-2008PK00326

PATIENT
  Age: 62 Year
  Sex: Female

DRUGS (3)
  1. ARIMIDEX [Suspect]
     Route: 048
     Dates: start: 20051101
  2. ARIMIDEX [Suspect]
     Route: 048
     Dates: start: 20080103, end: 20080108
  3. HERCEPTIN [Concomitant]
     Dates: start: 20070701

REACTIONS (4)
  - DIARRHOEA [None]
  - HYPERTENSION [None]
  - TREMOR [None]
  - VERTIGO [None]
